FAERS Safety Report 17036566 (Version 3)
Quarter: 2020Q2

REPORT INFORMATION
  Report Type: Spontaneous
  Country: US (occurrence: US)
  Receive Date: 20191115
  Receipt Date: 20200619
  Transmission Date: 20200713
  Serious: No
  Sender: FDA-Public Use
  Company Number: US-ASTRAZENECA-2019SF22495

PATIENT
  Age: 27023 Day
  Sex: Female

DRUGS (6)
  1. BYETTA [Suspect]
     Active Substance: EXENATIDE
     Dosage: THREE TIMES A DAY
     Route: 065
     Dates: start: 2005, end: 2014
  2. BYDUREON BCISE [Suspect]
     Active Substance: EXENATIDE
     Route: 065
     Dates: start: 20191017
  3. METFORMIN [Concomitant]
     Active Substance: METFORMIN HYDROCHLORIDE
  4. NOVOLOG [Suspect]
     Active Substance: INSULIN ASPART
     Route: 065
  5. TRESIBA [Suspect]
     Active Substance: INSULIN DEGLUDEC
     Route: 065
  6. HUMALOG [Suspect]
     Active Substance: INSULIN LISPRO
     Route: 065

REACTIONS (9)
  - Diabetes mellitus inadequate control [Unknown]
  - Injection site haemorrhage [Unknown]
  - Fatigue [Unknown]
  - Nausea [Unknown]
  - Thyroid mass [Not Recovered/Not Resolved]
  - Hypophagia [Unknown]
  - Device issue [Unknown]
  - Cardiac disorder [Unknown]
  - Wrong technique in device usage process [Unknown]

NARRATIVE: CASE EVENT DATE: 20191017
